FAERS Safety Report 9214637 (Version 1)
Quarter: 2013Q2

REPORT INFORMATION
  Report Type: Report from Study
  Country: US (occurrence: US)
  Receive Date: 20130405
  Receipt Date: 20130405
  Transmission Date: 20140414
  Serious: Yes (Hospitalization)
  Sender: FDA-Public Use
  Company Number: US-ROCHE-1190064

PATIENT
  Age: 67 Year
  Sex: Male
  Weight: 62.65 kg

DRUGS (2)
  1. ZELBORAF [Suspect]
     Indication: METASTATIC MALIGNANT MELANOMA
     Route: 048
     Dates: start: 20130114
  2. LEVAQUIN [Concomitant]
     Route: 042
     Dates: start: 20130208, end: 20130208

REACTIONS (7)
  - Pneumonia [Not Recovered/Not Resolved]
  - Rash [Recovered/Resolved]
  - Dyspnoea [Not Recovered/Not Resolved]
  - Dysphagia [Not Recovered/Not Resolved]
  - Dysphonia [Not Recovered/Not Resolved]
  - Weight decreased [Not Recovered/Not Resolved]
  - Mass [Not Recovered/Not Resolved]
